FAERS Safety Report 4347643-1 (Version None)
Quarter: 2004Q1

REPORT INFORMATION
  Report Type: 
  Country: None (occurrence: None)
  Receive Date: 20040325
  Receipt Date: 20040128
  Transmission Date: 20041129
  Serious: No
  Sender: FDA-Public Use
  Company Number: USA031254473

PATIENT
  Age: 58 Year
  Sex: Female

DRUGS (21)
  1. FORTEO [Suspect]
     Indication: OSTEOPENIA
     Dosage: 20 UG/DAY
     Dates: start: 20030616
  2. SYNTHROID [Concomitant]
  3. PRILOSEC [Concomitant]
  4. PARNATE [Concomitant]
  5. DURAGESIC [Concomitant]
  6. OXYCODONE HCL [Concomitant]
  7. FIORICET [Concomitant]
  8. LACTAID (TILACTASE) [Concomitant]
  9. AEROBID [Concomitant]
  10. TILADE (NEDOCROMIL SODIUM) [Concomitant]
  11. PROCTOFOAM (PRAMOCAINE HYDROCHLORIDE) [Concomitant]
  12. SALAGEN [Concomitant]
  13. VITAMIN B-12 [Concomitant]
  14. ESKALITH CR [Concomitant]
  15. AMBIEN [Concomitant]
  16. MAGNESIUM [Concomitant]
  17. CALCIUM AND VITAMIN D [Concomitant]
  18. VAGIFEM [Concomitant]
  19. LIDOCAINE 1% [Concomitant]
  20. CITRACAL (CALCIUM CITRATE) [Concomitant]
  21. MIRALAX [Concomitant]

REACTIONS (5)
  - ARTHRALGIA [None]
  - BLOOD ALKALINE PHOSPHATASE INCREASED [None]
  - BONE PAIN [None]
  - LABORATORY TEST ABNORMAL [None]
  - MUSCLE CRAMP [None]
